FAERS Safety Report 7437366-4 (Version None)
Quarter: 2011Q2

REPORT INFORMATION
  Report Type: 
  Country: None (occurrence: None)
  Receive Date: 20110426
  Receipt Date: 20110413
  Transmission Date: 20111010
  Serious: Yes (Hospitalization, Disabling, Other)
  Sender: FDA-Public Use
  Company Number: PHHY2010JP57257

PATIENT
  Age: 23 Year
  Sex: Female

DRUGS (7)
  1. DUVADILAN [Concomitant]
     Indication: ABORTION THREATENED
     Dosage: 2 DF, UNK
     Dates: start: 20100820, end: 20100927
  2. UTEMERIN [Concomitant]
     Indication: ABORTION THREATENED
     Dosage: 3 DF, UNK
     Route: 048
     Dates: start: 20101009, end: 20101023
  3. FLOMAX [Concomitant]
     Dosage: 3 DF, UNK
     Route: 048
     Dates: start: 20100720, end: 20100726
  4. DUVADILAN [Concomitant]
     Dosage: 3 DF, UNK
     Route: 048
     Dates: start: 20100904, end: 20101008
  5. METHERGINE [Suspect]
     Indication: ABORTION THREATENED
     Dosage: 0.375 MG, QD
     Route: 048
     Dates: start: 20100720, end: 20100726
  6. ADONA [Concomitant]
     Indication: ABORTION THREATENED
     Dosage: 72 MG, UNK
     Dates: start: 20100919, end: 20100927
  7. ADONA [Concomitant]
     Dosage: 3 DF, UNK
     Route: 048
     Dates: start: 20100928, end: 20101023

REACTIONS (6)
  - CYTOGENETIC ABNORMALITY [None]
  - DRUG EXPOSURE DURING PREGNANCY [None]
  - GENITAL HAEMORRHAGE [None]
  - HYPEREMESIS GRAVIDARUM [None]
  - RETROPLACENTAL HAEMATOMA [None]
  - ACCIDENTAL EXPOSURE [None]
